FAERS Safety Report 9617434 (Version 1)
Quarter: 2013Q4

REPORT INFORMATION
  Report Type: Report from Study
  Country: KR (occurrence: KR)
  Receive Date: 20131011
  Receipt Date: 20131011
  Transmission Date: 20140711
  Serious: Yes (Hospitalization)
  Sender: FDA-Public Use
  Company Number: KR-BAYER-2013-118837

PATIENT
  Age: 78 Year
  Sex: Male
  Weight: 72 kg

DRUGS (8)
  1. SORAFENIB (RAF KINASE INHIBITOR) [Suspect]
     Indication: HEPATOCELLULAR CARCINOMA
     Dosage: 600 MG, TOTAL DAILY DOSE
     Route: 048
     Dates: start: 20121124, end: 20121216
  2. SORAFENIB (RAF KINASE INHIBITOR) [Suspect]
     Indication: HEPATOCELLULAR CARCINOMA
     Dosage: 400 MG, TOTAL DAILY DOSE
     Route: 048
     Dates: start: 20121217, end: 20130120
  3. SORAFENIB (RAF KINASE INHIBITOR) [Suspect]
     Indication: HEPATOCELLULAR CARCINOMA
     Dosage: UNK
     Route: 048
     Dates: start: 20130202, end: 20130409
  4. SORAFENIB (RAF KINASE INHIBITOR) [Suspect]
     Indication: HEPATOCELLULAR CARCINOMA
     Dosage: 400 MG, TOTAL DAILY DOSE
     Route: 048
     Dates: start: 20130416
  5. GLIMEL [Concomitant]
     Dosage: 1 MG, QD
     Dates: start: 20121018
  6. URSA [Concomitant]
     Dosage: 400 MG, QD
     Dates: start: 20120927
  7. SILYMARIN [Concomitant]
     Dosage: 40 MG, QD
  8. SEBIVO [Concomitant]
     Dosage: 600 MG, QD

REACTIONS (3)
  - Muscular weakness [Recovered/Resolved]
  - Muscular weakness [Recovered/Resolved]
  - Hepatic encephalopathy [Recovered/Resolved]
